FAERS Safety Report 8517572-8 (Version None)
Quarter: 2012Q3

REPORT INFORMATION
  Report Type: 
  Country: None (occurrence: None)
  Receive Date: 20120718
  Receipt Date: 20120625
  Transmission Date: 20120928
  Serious: No
  Sender: FDA-Public Use
  Company Number: US-ASTRAZENECA-2012SE42853

PATIENT
  Age: 40 Year
  Sex: Male
  Weight: 85.7 kg

DRUGS (1)
  1. SEROQUEL XR [Suspect]
     Indication: BIPOLAR I DISORDER
     Route: 048
     Dates: start: 19970101

REACTIONS (10)
  - WEIGHT INCREASED [None]
  - DRUG DOSE OMISSION [None]
  - PANIC ATTACK [None]
  - AGEUSIA [None]
  - ARTHRALGIA [None]
  - DYSKINESIA [None]
  - PAIN [None]
  - INSOMNIA [None]
  - DRUG WITHDRAWAL SYNDROME [None]
  - WEIGHT DECREASED [None]
